FAERS Safety Report 13817647 (Version 1)
Quarter: 2017Q3

REPORT INFORMATION
  Report Type: Spontaneous
  Country: US (occurrence: US)
  Receive Date: 20170731
  Receipt Date: 20170731
  Transmission Date: 20171127
  Serious: Yes (Death, Other)
  Sender: FDA-Public Use
  Company Number: PHHY2017US110939

PATIENT
  Age: 77 Year
  Sex: Male

DRUGS (3)
  1. PACLITAXEL. [Suspect]
     Active Substance: PACLITAXEL
     Indication: SQUAMOUS CELL CARCINOMA
     Route: 065
  2. CARBOPLATIN. [Suspect]
     Active Substance: CARBOPLATIN
     Indication: SQUAMOUS CELL CARCINOMA
     Dosage: UNK
     Route: 005
  3. CETUXIMAB. [Suspect]
     Active Substance: CETUXIMAB
     Indication: SQUAMOUS CELL CARCINOMA
     Route: 065

REACTIONS (10)
  - Erythema [Fatal]
  - Flank pain [Fatal]
  - Erysipeloid [Fatal]
  - Dyspnoea [Fatal]
  - Malignant neoplasm progression [Fatal]
  - Condition aggravated [Unknown]
  - Swelling [Fatal]
  - Febrile neutropenia [Fatal]
  - Squamous cell carcinoma [Fatal]
  - Recurrent cancer [Fatal]
